FAERS Safety Report 9538822 (Version 1)
Quarter: 2013Q3

REPORT INFORMATION
  Report Type: Report from Study
  Country: NZ (occurrence: NZ)
  Receive Date: 20130920
  Receipt Date: 20130920
  Transmission Date: 20140515
  Serious: Yes (Other)
  Sender: FDA-Public Use
  Company Number: PHHY2013NZ104664

PATIENT
  Sex: Female

DRUGS (2)
  1. CLOZARIL [Suspect]
     Dosage: UNK
     Dates: start: 20031015
  2. CLOZARIL [Suspect]
     Dosage: UNK
     Dates: start: 20130919

REACTIONS (2)
  - Intestinal perforation [Unknown]
  - Constipation [Unknown]
